FAERS Safety Report 4391958-8 (Version None)
Quarter: 2004Q3

REPORT INFORMATION
  Report Type: 
  Country: None (occurrence: None)
  Receive Date: 20040701
  Receipt Date: 20040621
  Transmission Date: 20050211
  Serious: Yes (Hospitalization, Other)
  Sender: FDA-Public Use
  Company Number: US-2004-027330

PATIENT
  Sex: Female

DRUGS (1)
  1. ULTRAVIST 300 [Suspect]
     Indication: COMPUTERISED TOMOGRAM ABDOMEN
     Dosage: 100 ML (2 ML/SEC), INTRAVENOUS
     Route: 042
     Dates: start: 20040618, end: 20040618

REACTIONS (10)
  - CONTRAST MEDIA REACTION [None]
  - ELECTROCARDIOGRAM ABNORMAL [None]
  - EYE SWELLING [None]
  - HYPOVENTILATION [None]
  - LOSS OF CONSCIOUSNESS [None]
  - RESPIRATORY RATE INCREASED [None]
  - SOMNOLENCE [None]
  - SWELLING FACE [None]
  - SYNCOPE [None]
  - TREMOR [None]
